FAERS Safety Report 26080222 (Version 1)
Quarter: 2025Q4

REPORT INFORMATION
  Report Type: Spontaneous
  Country: EU (occurrence: EU)
  Receive Date: 20251124
  Receipt Date: 20251124
  Transmission Date: 20260118
  Serious: Yes (Hospitalization)
  Sender: CHEPLAPHARM
  Company Number: None

PATIENT
  Age: 40 Year
  Sex: Female
  Weight: 50 kg

DRUGS (7)
  1. QUETIAPINE [Suspect]
     Active Substance: QUETIAPINE
     Indication: Poisoning deliberate
     Route: 048
     Dates: start: 20251001
  2. MIDAZOLAM [Suspect]
     Active Substance: MIDAZOLAM
  3. METHADONE [Suspect]
     Active Substance: METHADONE HYDROCHLORIDE
     Dosage: DAILY DOSE: 50 MILLIGRAM
     Dates: start: 20250930
  4. RISPERIDONE [Suspect]
     Active Substance: RISPERIDONE
     Dosage: 1 TABLET AT 6 P.M?DAILY DOSE: 1 DOSAGE FORM
  5. DIAZEPAM [Suspect]
     Active Substance: DIAZEPAM
     Dosage: 1 TABLET AT 8 A.M., 12 P.M. AND 6 P.M. ?DAILY DOSE: 3 DOSAGE FORM
  6. CARBIMAZOLE [Suspect]
     Active Substance: CARBIMAZOLE
     Dosage: 1 TABLET AT 8 A.M., 12 P.M. AND 6 P.M. ?DAILY DOSE: 3 DOSAGE FORM
  7. COCAINE [Suspect]
     Active Substance: COCAINE
     Indication: Substance use

REACTIONS (3)
  - Aggression [Recovered/Resolved]
  - Toxicity to various agents [Unknown]
  - Somnolence [Unknown]

NARRATIVE: CASE EVENT DATE: 20251001
